FAERS Safety Report 6198643-0 (Version None)
Quarter: 2009Q2

REPORT INFORMATION
  Report Type: 
  Country: None (occurrence: None)
  Receive Date: 20090521
  Receipt Date: 20090509
  Transmission Date: 20091009
  Serious: Yes (Death, Other)
  Sender: FDA-Public Use
  Company Number: US-PFIZER INC-2009197931

PATIENT
  Sex: Male

DRUGS (2)
  1. ALPRAZOLAM [Suspect]
  2. OXYCODONE [Suspect]

REACTIONS (7)
  - CONTUSION [None]
  - EXCORIATION [None]
  - HEPATOSPLENOMEGALY [None]
  - NECK INJURY [None]
  - POISONING [None]
  - PULMONARY OEDEMA [None]
  - THYROID ADENOMA [None]
